FAERS Safety Report 7648164-0 (Version None)
Quarter: 2011Q3

REPORT INFORMATION
  Report Type: 
  Country: None (occurrence: None)
  Receive Date: 20110801
  Receipt Date: 20110727
  Transmission Date: 20111222
  Serious: Yes (Life-Threatening)
  Sender: FDA-Public Use
  Company Number: FR-ASTRAZENECA-2011SE45295

PATIENT
  Age: 57 Year
  Sex: Female

DRUGS (8)
  1. DIPRIVAN [Suspect]
     Route: 042
     Dates: start: 20110525, end: 20110525
  2. IMOVANE [Concomitant]
  3. CELOCURINE [Suspect]
     Dates: start: 20110525, end: 20110525
  4. STABLON [Concomitant]
  5. TRIMEPRAZINE TARTRATE [Concomitant]
  6. DEPAKOTE [Concomitant]
  7. SEVOFLURANE [Suspect]
     Dates: start: 20110525, end: 20110525
  8. ULTIVA [Suspect]
     Dates: start: 20110525, end: 20110525

REACTIONS (1)
  - ANAPHYLACTIC SHOCK [None]
